FAERS Safety Report 8919983 (Version 1)
Quarter: 2012Q4

REPORT INFORMATION
  Report Type: 
  Country: US (occurrence: US)
  Receive Date: 20121121
  Receipt Date: 20121121
  Transmission Date: 20130627
  Serious: Yes (Hospitalization)
  Sender: FDA-Public Use
  Company Number: US-009507513-1211USA007279

PATIENT
  Age: 66 Year
  Sex: Female

DRUGS (2)
  1. METHYLPREDNISOLONE SODIUM SUCCINATE [Suspect]
     Indication: RADICULAR PAIN
     Dosage: 80 mg in 4 mL saline, Once
     Route: 008
  2. KETOROLAC TROMETHAMINE [Suspect]
     Dosage: 30 mg, Once
     Route: 030

REACTIONS (1)
  - Extradural haematoma [Unknown]
